FAERS Safety Report 10151619 (Version 1)
Quarter: 2014Q2

REPORT INFORMATION
  Report Type: Spontaneous
  Country: US (occurrence: US)
  Receive Date: 20140505
  Receipt Date: 20140505
  Transmission Date: 20141212
  Serious: No
  Sender: FDA-Public Use
  Company Number: US-009507513-1405USA001149

PATIENT
  Age: 19 Year
  Sex: Female
  Weight: 76.19 kg

DRUGS (2)
  1. IMPLANON [Suspect]
     Indication: CONTRACEPTION
     Dosage: 3 YEAR IMPLANT IN LEFT ARM
     Route: 059
     Dates: start: 20130222
  2. VYVANSE [Concomitant]
     Dosage: UNK

REACTIONS (2)
  - Muscle spasms [Unknown]
  - Implant site pruritus [Unknown]
